FAERS Safety Report 12462785 (Version 5)
Quarter: 2017Q2

REPORT INFORMATION
  Report Type: Spontaneous
  Country: US (occurrence: US)
  Receive Date: 20160614
  Receipt Date: 20170417
  Transmission Date: 20170830
  Serious: Yes (Hospitalization, Other)
  Sender: FDA-Public Use
  Company Number: US-JNJFOC-20160508443

PATIENT
  Age: 52 Year
  Sex: Male
  Weight: 101 kg

DRUGS (2)
  1. INVOKANA [Suspect]
     Active Substance: CANAGLIFLOZIN
     Indication: DIABETES MELLITUS
     Route: 048
     Dates: start: 201502, end: 201505
  2. METFORMIN [Suspect]
     Active Substance: METFORMIN HYDROCHLORIDE
     Indication: PRODUCT USED FOR UNKNOWN INDICATION
     Route: 065

REACTIONS (6)
  - Cardiovascular disorder [Unknown]
  - Cerebrovascular accident [Unknown]
  - Myocardial infarction [Unknown]
  - Renal failure [Unknown]
  - Diabetic ketoacidosis [Unknown]
  - Embolism [Unknown]

NARRATIVE: CASE EVENT DATE: 20150506
